FAERS Safety Report 10234536 (Version 1)
Quarter: 2014Q2

REPORT INFORMATION
  Report Type: Spontaneous
  Country: US (occurrence: US)
  Receive Date: 20140613
  Receipt Date: 20140613
  Transmission Date: 20141212
  Serious: No
  Sender: FDA-Public Use
  Company Number: US-B.I. PHARMACEUTICALS,INC./RIDGEFIELD-2014-BI-25101BP

PATIENT
  Age: 57 Year
  Sex: Female
  Weight: 107 kg

DRUGS (15)
  1. TRADJENTA [Suspect]
     Indication: TYPE 2 DIABETES MELLITUS
     Dosage: 5 MG
     Route: 048
     Dates: start: 20140603
  2. CYMBALTA [Concomitant]
     Indication: DEPRESSION
     Dosage: 60 MG
     Route: 048
  3. ASPIRIN [Concomitant]
     Dosage: 81 MG
     Route: 048
  4. SYNTHROID [Concomitant]
     Indication: HYPOTHYROIDISM
     Dosage: 50 MCG
     Route: 048
  5. GLIPLIZIDE [Concomitant]
     Indication: TYPE 2 DIABETES MELLITUS
     Dosage: 10 MG
     Route: 048
  6. DIOVAN [Concomitant]
     Indication: HYPERTENSION
     Dosage: DOSE PER APPLICATION: 320 MG/12.5 MG DAILY DOSE: 320 MG/12.5 MG
     Route: 048
  7. NORVASC [Concomitant]
     Indication: HYPERTENSION
     Dosage: 5 MG
     Route: 048
  8. ATIVAN [Concomitant]
     Indication: ANXIETY
     Dosage: 4 MG
     Route: 048
  9. VITAMIN B 12 [Concomitant]
     Dosage: 1000 MG
     Route: 048
  10. VENTOLIN [Concomitant]
     Indication: ASTHMA
     Dosage: 4 PUF
     Route: 055
  11. PERCOCET [Concomitant]
     Indication: PAIN
     Dosage: DOSE PER APPLICATION: 5/325 MG, DAILY DOSE: 10/650 MG
     Route: 048
  12. LIMICTAL [Concomitant]
     Indication: DEPRESSION
     Dosage: 300 MG
     Route: 048
  13. SEROQUEL [Concomitant]
     Indication: DEPRESSION
     Dosage: 100 MG
     Route: 048
  14. ZOCOR [Concomitant]
     Indication: BLOOD CHOLESTEROL INCREASED
     Dosage: 10 MG
     Route: 048
  15. SINGULAR [Concomitant]
     Indication: ASTHMA
     Dosage: 10 MG
     Route: 050

REACTIONS (1)
  - Abdominal pain upper [Not Recovered/Not Resolved]
